FAERS Safety Report 7274644-6 (Version None)
Quarter: 2011Q1

REPORT INFORMATION
  Report Type: 
  Country: None (occurrence: None)
  Receive Date: 20110204
  Receipt Date: 20110124
  Transmission Date: 20110831
  Serious: Yes (Hospitalization)
  Sender: FDA-Public Use
  Company Number: GB-BRISTOL-MYERS SQUIBB COMPANY-15519580

PATIENT
  Age: 64 Year
  Sex: Male

DRUGS (5)
  1. AMLODIPINE BESYLATE [Suspect]
     Dosage: TEMPORARILY WITHDRAWN ON 05-JAN-2011
     Route: 048
     Dates: start: 20090305
  2. METFORMIN HCL [Suspect]
     Dosage: TEMPORARILY WITHDRAWN ON 05-JAN-2011
     Route: 048
     Dates: start: 20090407
  3. CANDESARTAN [Concomitant]
     Route: 048
     Dates: start: 20091116, end: 20110105
  4. BENDROFLUAZIDE [Suspect]
     Dosage: TEMPORARILY WITHDRAWN ON 05-JAN-2011
     Route: 048
     Dates: start: 20090813
  5. SUNITINIB MALATE [Concomitant]
     Indication: TRANSITIONAL CELL CARCINOMA
     Dosage: TEMPORARILY WITHDRAWN ON 05-JAN-2011
     Route: 048
     Dates: start: 20100911

REACTIONS (2)
  - HYPOTENSION [None]
  - PYREXIA [None]
